FAERS Safety Report 7263515-7 (Version None)
Quarter: 2011Q1

REPORT INFORMATION
  Report Type: 
  Country: None (occurrence: None)
  Receive Date: 20110130
  Receipt Date: 20101203
  Transmission Date: 20110831
  Serious: No
  Sender: FDA-Public Use
  Company Number: US-ABBOTT-10P-163-0689411-00

PATIENT
  Age: 47 Year
  Sex: Female

DRUGS (4)
  1. ULTRAM [Concomitant]
     Indication: PAIN
  2. HUMIRA [Suspect]
     Indication: CROHN'S DISEASE
     Dates: start: 20101001
  3. HYOSCYAMINE [Concomitant]
     Indication: GASTROINTESTINAL PAIN
     Dosage: 1-2 TIMES A DAY
  4. WELCHOL [Concomitant]
     Indication: CROHN'S DISEASE

REACTIONS (4)
  - DIARRHOEA [None]
  - OROPHARYNGEAL PAIN [None]
  - NASAL CONGESTION [None]
  - SINUSITIS [None]
